FAERS Safety Report 6298649-7 (Version None)
Quarter: 2009Q3

REPORT INFORMATION
  Report Type: 
  Country: None (occurrence: None)
  Receive Date: 20090804
  Receipt Date: 20090724
  Transmission Date: 20100115
  Serious: Yes (Hospitalization)
  Sender: FDA-Public Use
  Company Number: WAES 0903USA00432

PATIENT
  Age: 64 Year
  Sex: Female
  Weight: 112.9457 kg

DRUGS (11)
  1. PRINIVIL [Suspect]
     Indication: HYPERTENSION
     Dosage: 20 MG/DAILY/PO
     Route: 048
     Dates: start: 20080116, end: 20090104
  2. TAXOL [Suspect]
     Indication: BREAST CANCER FEMALE
     Dosage: 142 MG/IV
     Route: 042
     Dates: start: 20070315, end: 20090116
  3. AVASTIN [Suspect]
     Indication: BREAST CANCER FEMALE
     Dosage: 1128MG/IV
     Route: 042
     Dates: start: 20070315, end: 20090318
  4. LAXITEX [Concomitant]
  5. NOVOLOG [Concomitant]
  6. ASPIRIN [Concomitant]
  7. PANTOPRAZOLE SODIUM [Concomitant]
  8. PYRIDOXINE [Concomitant]
  9. SENNA [Concomitant]
  10. VITAMINS (UNSPECIFIED) [Concomitant]
  11. ZOLPIDEM TARTRATE [Concomitant]

REACTIONS (15)
  - ANGIOPATHY [None]
  - AORTIC STENOSIS [None]
  - BLOOD GLUCOSE INCREASED [None]
  - CONTUSION [None]
  - DEHYDRATION [None]
  - ELECTROCARDIOGRAM ST SEGMENT DEPRESSION [None]
  - ELECTROCARDIOGRAM T WAVE INVERSION [None]
  - HAEMATOCRIT DECREASED [None]
  - HAEMOGLOBIN DECREASED [None]
  - HYPOTENSION [None]
  - PROTEIN URINE PRESENT [None]
  - SYNCOPE [None]
  - TROPONIN I INCREASED [None]
  - URINARY CASTS [None]
  - URINE KETONE BODY PRESENT [None]
